FAERS Safety Report 20639263 (Version 1)
Quarter: 2022Q1

REPORT INFORMATION
  Report Type: Spontaneous
  Country: US (occurrence: US)
  Receive Date: 20220326
  Receipt Date: 20220326
  Transmission Date: 20220424
  Serious: Yes (Hospitalization, Other)
  Sender: FDA-Public Use
  Company Number: US-JNJFOC-20220332766

PATIENT
  Sex: Male

DRUGS (3)
  1. RISPERDAL [Suspect]
     Active Substance: RISPERIDONE
     Indication: Schizophrenia
     Route: 065
     Dates: start: 202112
  2. RISPERDAL [Suspect]
     Active Substance: RISPERIDONE
     Route: 065
     Dates: start: 2022
  3. CAPLYTA [Suspect]
     Active Substance: LUMATEPERONE
     Indication: Schizophrenia
     Route: 065
     Dates: start: 202006, end: 20211231

REACTIONS (5)
  - Suicidal ideation [Unknown]
  - Schizophrenia [Not Recovered/Not Resolved]
  - Blood pressure increased [Unknown]
  - Dyskinesia [Unknown]
  - Crime [Unknown]

NARRATIVE: CASE EVENT DATE: 20220101
